FAERS Safety Report 13949847 (Version 1)
Quarter: 2017Q3

REPORT INFORMATION
  Report Type: Spontaneous
  Country: US (occurrence: US)
  Receive Date: 20170908
  Receipt Date: 20170908
  Transmission Date: 20171128
  Serious: No
  Sender: FDA-Public Use
  Company Number: US-ROCHE-1140113

PATIENT
  Sex: Female

DRUGS (2)
  1. RITUXAN [Suspect]
     Active Substance: RITUXIMAB
     Indication: RHEUMATOID ARTHRITIS
     Route: 042
     Dates: start: 20120802
  2. RITUXAN [Suspect]
     Active Substance: RITUXIMAB
     Route: 042
     Dates: start: 20120822

REACTIONS (7)
  - Pyrexia [Unknown]
  - Ulcer [Unknown]
  - Constipation [Unknown]
  - Cough [Unknown]
  - Oropharyngeal pain [Unknown]
  - Rash [Unknown]
  - Tonsillitis [Unknown]
